FAERS Safety Report 6607399-6 (Version None)
Quarter: 2010Q1

REPORT INFORMATION
  Report Type: 
  Country: None (occurrence: None)
  Receive Date: 20100129
  Receipt Date: 20100119
  Transmission Date: 20100710
  Serious: Yes (Other)
  Sender: FDA-Public Use
  Company Number: THYM-1001343

PATIENT
  Age: 30 Year
  Sex: Male

DRUGS (1)
  1. THYMOGLOBULIN [Suspect]
     Indication: PROPHYLAXIS AGAINST TRANSPLANT REJECTION
     Dosage: INTRAVENOUS
     Route: 042

REACTIONS (5)
  - ARTHROPATHY [None]
  - COAGULATION FACTOR V LEVEL DECREASED [None]
  - HEPATITIS FULMINANT [None]
  - PROTHROMBIN TIME PROLONGED [None]
  - SERUM SICKNESS [None]
